FAERS Safety Report 7103717-3 (Version None)
Quarter: 2010Q4

REPORT INFORMATION
  Report Type: 
  Country: None (occurrence: None)
  Receive Date: 20101109
  Receipt Date: 20101027
  Transmission Date: 20110411
  Serious: Yes (Other)
  Sender: FDA-Public Use
  Company Number: 8054402

PATIENT
  Sex: Male

DRUGS (5)
  1. CERTOLIZUMAB PEGOL [Suspect]
     Indication: CROHN'S DISEASE
     Dosage: (400 MG 1X/WEEKS, - NR OF DOSES :3 SUBCUTANEOUS), (400 MG, DOSE FREQ.: ONCE MONTHLY SUBCUTANEOUS)
     Route: 058
     Dates: start: 20040826, end: 20040923
  2. CERTOLIZUMAB PEGOL [Suspect]
     Indication: CROHN'S DISEASE
     Dosage: (400 MG 1X/WEEKS, - NR OF DOSES :3 SUBCUTANEOUS), (400 MG, DOSE FREQ.: ONCE MONTHLY SUBCUTANEOUS)
     Route: 058
     Dates: start: 20050328, end: 20081216
  3. ASACOL [Concomitant]
  4. NIFEDIPINE [Concomitant]
  5. CANASA [Concomitant]

REACTIONS (6)
  - DISEASE RECURRENCE [None]
  - FREQUENT BOWEL MOVEMENTS [None]
  - INFECTION [None]
  - PAIN [None]
  - PERIRECTAL ABSCESS [None]
  - SINUSITIS [None]
